FAERS Safety Report 6317185-2 (Version None)
Quarter: 2009Q3

REPORT INFORMATION
  Report Type: 
  Country: None (occurrence: None)
  Receive Date: 20090820
  Receipt Date: 20090814
  Transmission Date: 20100115
  Serious: Yes (Other)
  Sender: FDA-Public Use
  Company Number: US-JNJCH-2009021766

PATIENT
  Age: 53 Year
  Sex: Female
  Weight: 60.3 kg

DRUGS (1)
  1. ROGAINE [Suspect]
     Indication: ALOPECIA
     Dosage: TEXT:RECOMMENDED DOSAGE TWICE DAILY
     Route: 061

REACTIONS (2)
  - ALOPECIA [None]
  - DEAFNESS [None]
